FAERS Safety Report 7180016 (Version 6)
Quarter: 2013Q4

REPORT INFORMATION
  Report Type: Spontaneous
  Country: US (occurrence: US)
  Receive Date: 20091118
  Receipt Date: 20131202
  Transmission Date: 20140711
  Serious: Yes (Hospitalization, Other)
  Sender: FDA-Public Use
  Company Number: US-BAYER-200938748NA

PATIENT
  Age: 30 Year
  Sex: Female
  Weight: 117.91 kg

DRUGS (4)
  1. YAZ [Suspect]
     Indication: MENSTRUATION IRREGULAR
     Dosage: 1 DF (DAILY DOSE), QD, ORAL
     Route: 048
     Dates: start: 2007, end: 2009
  2. YAZ [Suspect]
     Indication: OVARIAN CYST
     Dosage: UNK
  3. YAZ [Suspect]
     Indication: MENORRHAGIA
  4. VITAMINS [Concomitant]
     Route: 048

REACTIONS (5)
  - Gallbladder disorder [None]
  - Cholelithiasis [None]
  - Cholecystitis chronic [None]
  - Bile duct stone [None]
  - Pancreatitis [None]
